FAERS Safety Report 8552584-X (Version None)
Quarter: 2012Q3

REPORT INFORMATION
  Report Type: 
  Country: None (occurrence: None)
  Receive Date: 20120731
  Receipt Date: 20100831
  Transmission Date: 20120928
  Serious: Yes (Hospitalization, Other)
  Sender: FDA-Public Use
  Company Number: US-BAYER-201019755NA

PATIENT
  Age: 28 Year
  Sex: Female
  Weight: 72.727 kg

DRUGS (6)
  1. HYDROCODONE BITARTRATE AND ACETAMINOPHEN [Concomitant]
     Dosage: 5MG/500MG
     Dates: start: 20040101, end: 20070101
  2. NAPROXEN SODIUM [Concomitant]
     Dates: start: 20060601, end: 20060601
  3. YASMIN [Suspect]
  4. DROSPIRENONE AND ETHINYL ESTRADIOL [Suspect]
  5. ZOFRAN [Concomitant]
     Dates: start: 20061201
  6. YAZ [Suspect]
     Indication: CONTRACEPTION
     Route: 048
     Dates: start: 19980101, end: 20070101

REACTIONS (6)
  - ABDOMINAL PAIN [None]
  - NAUSEA [None]
  - CHOLECYSTITIS [None]
  - BILIARY COLIC [None]
  - CHOLECYSTITIS CHRONIC [None]
  - CHOLELITHIASIS [None]
